FAERS Safety Report 7791734-X (Version None)
Quarter: 2011Q3

REPORT INFORMATION
  Report Type: 
  Country: None (occurrence: None)
  Receive Date: 20110930
  Receipt Date: 20110930
  Transmission Date: 20111222
  Serious: Yes (Other)
  Sender: FDA-Public Use
  Company Number: None

PATIENT
  Age: 52 Year
  Sex: Female

DRUGS (1)
  1. NEUPOGEN [Suspect]
     Indication: WHITE BLOOD CELL COUNT DECREASED
     Dosage: 300MCG DAILY SUBCUTANEOUS
     Route: 058
     Dates: start: 20110213, end: 20110915

REACTIONS (3)
  - CHEST PAIN [None]
  - PAIN [None]
  - HYPERHIDROSIS [None]
